FAERS Safety Report 17446306 (Version 2)
Quarter: 2020Q1

REPORT INFORMATION
  Report Type: Spontaneous
  Country: US (occurrence: US)
  Receive Date: 20200221
  Receipt Date: 20200309
  Transmission Date: 20200409
  Serious: No
  Sender: FDA-Public Use
  Company Number: US-VERTEX PHARMACEUTICALS-2020-003276

PATIENT
  Sex: Female
  Weight: 14 kg

DRUGS (10)
  1. MEPHYTON [Concomitant]
     Active Substance: PHYTONADIONE
     Dosage: 5 MG
  2. OMEPRAZOLE. [Concomitant]
     Active Substance: OMEPRAZOLE
     Dosage: 20 MG
  3. SPIRONOLACTONE. [Concomitant]
     Active Substance: SPIRONOLACTONE
     Dosage: 25 MG
  4. RANITIDINE HCL [Concomitant]
     Active Substance: RANITIDINE HYDROCHLORIDE
     Dosage: 15 MG/ML SYRUP
  5. MELATONIN [Concomitant]
     Active Substance: MELATONIN
     Dosage: 10 MG CAPSULE
  6. ALBUTEROL SULFATE. [Concomitant]
     Active Substance: ALBUTEROL SULFATE
  7. IRON [Concomitant]
     Active Substance: IRON
     Dosage: 18 MG
  8. VITAMIN K [CALCIUM PHOSPHATE DIBASIC;PHYTOMENADIONE] [Concomitant]
     Dosage: 100% LIQUID
  9. CREON [Concomitant]
     Active Substance: PANCRELIPASE AMYLASE\PANCRELIPASE LIPASE\PANCRELIPASE PROTEASE
     Dosage: 3-9.5-15 K CAPSULE
  10. ORKAMBI [Suspect]
     Active Substance: IVACAFTOR\LUMACAFTOR
     Indication: CYSTIC FIBROSIS
     Dosage: 150MG LUMACAFTOR/188MG IVACAFTOR, BID
     Route: 048
     Dates: start: 20191209

REACTIONS (4)
  - Product dose omission [Recovered/Resolved]
  - Flatulence [Recovered/Resolved]
  - Insurance issue [Recovered/Resolved]
  - Restlessness [Recovered/Resolved]
